FAERS Safety Report 10449210 (Version 1)
Quarter: 2014Q3

REPORT INFORMATION
  Report Type: Spontaneous
  Country: US (occurrence: None)
  Receive Date: 20140911
  Receipt Date: 20140911
  Transmission Date: 20150326
  Serious: Yes (Other)
  Sender: FDA-Public Use
  Company Number: None

PATIENT
  Age: 72 Year
  Sex: Male

DRUGS (1)
  1. ZYTIGA [Suspect]
     Active Substance: ABIRATERONE ACETATE
     Indication: PROSTATE CANCER
     Dosage: 250 MG -TAKE 4 DAILY DAILY ORAL
     Route: 048
     Dates: start: 20140424

REACTIONS (1)
  - Blindness unilateral [None]

NARRATIVE: CASE EVENT DATE: 20140907
